FAERS Safety Report 5374201-2 (Version None)
Quarter: 2007Q2

REPORT INFORMATION
  Report Type: 
  Country: None (occurrence: None)
  Receive Date: 20070627
  Receipt Date: 20061023
  Transmission Date: 20071010
  Serious: Yes (Death)
  Sender: FDA-Public Use
  Company Number: 468540

PATIENT
  Age: 48 Year
  Sex: Male

DRUGS (1)
  1. XELODA [Suspect]
     Indication: PANCREATIC CARCINOMA
     Dosage: 2 GRAN 2 PER DAY ORAL
     Route: 048
     Dates: start: 20060718, end: 20060824

REACTIONS (8)
  - ABDOMINAL PAIN [None]
  - ANOREXIA [None]
  - ASCITES [None]
  - DEEP VEIN THROMBOSIS [None]
  - DYSGEUSIA [None]
  - MUSCULOSKELETAL PAIN [None]
  - PALMAR-PLANTAR ERYTHRODYSAESTHESIA SYNDROME [None]
  - PANCREATIC CARCINOMA [None]
